FAERS Safety Report 8190263-1 (Version None)
Quarter: 2012Q1

REPORT INFORMATION
  Report Type: 
  Country: None (occurrence: None)
  Receive Date: 20120305
  Receipt Date: 20120229
  Transmission Date: 20120608
  Serious: Yes (Other)
  Sender: FDA-Public Use
  Company Number: ADR-2011-10972

PATIENT
  Age: 28 Year
  Sex: Male

DRUGS (2)
  1. LIORESAL [Suspect]
     Indication: MUSCLE SPASTICITY
     Dosage: 599.8 MCG, DAILY, INTRA
     Route: 037
  2. FENTANYL [Concomitant]

REACTIONS (7)
  - IMPLANT SITE EFFUSION [None]
  - WOUND DEHISCENCE [None]
  - IMPLANT SITE HAEMATOMA [None]
  - IMPLANT SITE EROSION [None]
  - CULTURE WOUND POSITIVE [None]
  - IMPLANT SITE DISCHARGE [None]
  - IMPLANT SITE HAEMORRHAGE [None]
